FAERS Safety Report 4410560-2 (Version None)
Quarter: 2004Q3

REPORT INFORMATION
  Report Type: 
  Country: None (occurrence: None)
  Receive Date: 20040729
  Receipt Date: 20040721
  Transmission Date: 20050211
  Serious: Yes (Disabling)
  Sender: FDA-Public Use
  Company Number: CH-BRISTOL-MYERS SQUIBB COMPANY-12646808

PATIENT
  Age: 63 Year
  Sex: Female

DRUGS (4)
  1. TRAZODONE HCL [Suspect]
     Route: 048
     Dates: start: 20040514, end: 20040518
  2. EFFEXOR [Suspect]
     Dosage: MID-APRIL
     Route: 048
     Dates: start: 20040401, end: 20040518
  3. LAMICTAL [Suspect]
     Dosage: ^DOSE PROGESSIVELY INCREASED UP TO 50 MG 2X^ SINCE MID-APR
     Route: 048
     Dates: start: 20040401, end: 20040518
  4. LUDIOMIL [Suspect]
     Route: 048
     Dates: start: 20040513, end: 20040518

REACTIONS (1)
  - ANGIONEUROTIC OEDEMA [None]
